FAERS Safety Report 18565343 (Version 1)
Quarter: 2020Q4

REPORT INFORMATION
  Report Type: Spontaneous
  Country: JP (occurrence: JP)
  Receive Date: 20201201
  Receipt Date: 20201201
  Transmission Date: 20210114
  Serious: No
  Sender: FDA-Public Use
  Company Number: JP-ELI_LILLY_AND_COMPANY-JP202011012506

PATIENT
  Age: 64 Year
  Sex: Female

DRUGS (5)
  1. DULOXETINE HYDROCHLORIDE. [Suspect]
     Active Substance: DULOXETINE HYDROCHLORIDE
     Indication: BACK PAIN
     Dosage: 20 MG, DAILY
     Route: 048
     Dates: start: 20200908, end: 20200922
  2. DULOXETINE HYDROCHLORIDE. [Suspect]
     Active Substance: DULOXETINE HYDROCHLORIDE
     Dosage: 40 MG, DAILY
     Route: 048
     Dates: start: 20200923, end: 20201007
  3. METHYCOBAL [Suspect]
     Active Substance: METHYLCOBALAMIN
     Indication: BACK PAIN
     Route: 048
  4. DULOXETINE HYDROCHLORIDE. [Suspect]
     Active Substance: DULOXETINE HYDROCHLORIDE
     Dosage: 60 MG, DAILY
     Route: 048
     Dates: start: 20201008, end: 202011
  5. EPADEL T [Suspect]
     Active Substance: ICOSAPENT ETHYL
     Indication: BACK PAIN
     Route: 048

REACTIONS (3)
  - Hepatic function abnormal [Recovered/Resolved]
  - Pain [Unknown]
  - Feeling cold [Unknown]

NARRATIVE: CASE EVENT DATE: 202011
